FAERS Safety Report 8028540 (Version 8)
Quarter: 2012Q4

REPORT INFORMATION
  Report Type: 
  Country: US (occurrence: US)
  Receive Date: 20110711
  Receipt Date: 20121024
  Transmission Date: 20130627
  Serious: Yes (Other)
  Sender: FDA-Public Use
  Company Number: US-ROCHE-787464

PATIENT
  Age: 15 Year
  Sex: Female
  Weight: 54.48 kg

DRUGS (6)
  1. ACCUTANE [Suspect]
     Indication: ACNE
     Route: 048
     Dates: start: 200104, end: 200109
  2. ACCUTANE [Suspect]
     Route: 048
     Dates: start: 200607, end: 200611
  3. SOTRET [Suspect]
     Indication: PRODUCT USED FOR UNKNOWN INDICATION
     Route: 048
  4. MINOCYCLINE [Concomitant]
     Route: 065
  5. DIFFERIN [Concomitant]
  6. TRINESSA [Concomitant]
     Indication: CONTRACEPTION
     Route: 065

REACTIONS (6)
  - Irritable bowel syndrome [Unknown]
  - Injury [Unknown]
  - Enterocolitis [Unknown]
  - Lip dry [Unknown]
  - Dry mouth [Unknown]
  - Nasal dryness [Unknown]
